FAERS Safety Report 6095901-5 (Version None)
Quarter: 2009Q1

REPORT INFORMATION
  Report Type: 
  Country: None (occurrence: None)
  Receive Date: 20090227
  Receipt Date: 20080711
  Transmission Date: 20090719
  Serious: No
  Sender: FDA-Public Use
  Company Number: A0737236A

PATIENT
  Age: 57 Year
  Sex: Female

DRUGS (12)
  1. LAMICTAL [Suspect]
     Indication: BIPOLAR DISORDER
     Dosage: 150MG PER DAY
     Route: 048
     Dates: start: 20080401
  2. PROCHLORPERAZINE [Concomitant]
  3. ALCOHOL [Concomitant]
  4. SEROQUEL [Concomitant]
  5. LEVOXYL [Concomitant]
  6. LASIX [Concomitant]
  7. GLYBURIDE [Concomitant]
  8. METFORMIN [Concomitant]
  9. AMITIZA [Concomitant]
  10. KADIAN [Concomitant]
  11. ENDOCET [Concomitant]
  12. KLONOPIN [Concomitant]

REACTIONS (3)
  - DEPRESSION [None]
  - NAUSEA [None]
  - RASH PRURITIC [None]
